FAERS Safety Report 20369989 (Version 2)
Quarter: 2022Q1

REPORT INFORMATION
  Report Type: Spontaneous
  Country: JP (occurrence: JP)
  Receive Date: 20220124
  Receipt Date: 20220303
  Transmission Date: 20220424
  Serious: Yes (Hospitalization)
  Sender: FDA-Public Use
  Company Number: JP-BAYER-2021A273617

PATIENT
  Age: 67 Year
  Sex: Male

DRUGS (2)
  1. KOVALTRY [Suspect]
     Active Substance: ANTIHEMOPHILIC FACTOR, HUMAN RECOMBINANT
     Indication: Factor VIII deficiency
     Dosage: 1000 UNITS, DAILY INTRAVENOUS INJECTION
     Dates: start: 20211218, end: 20211230
  2. KOVALTRY [Suspect]
     Active Substance: ANTIHEMOPHILIC FACTOR, HUMAN RECOMBINANT
     Indication: Factor VIII deficiency
     Dosage: ADMINISTERED TWICE A WEEK (MONDAY, THURSDAY)
     Dates: start: 20220103

REACTIONS (2)
  - Traumatic fracture [Recovering/Resolving]
  - Fall [None]

NARRATIVE: CASE EVENT DATE: 20211218
